FAERS Safety Report 5727671-1 (Version None)
Quarter: 2008Q2

REPORT INFORMATION
  Report Type: 
  Country: None (occurrence: None)
  Receive Date: 20080505
  Receipt Date: 20080430
  Transmission Date: 20081010
  Serious: Yes (Other)
  Sender: FDA-Public Use
  Company Number: B0518147A

PATIENT
  Age: 41 Year
  Sex: Female

DRUGS (4)
  1. LAPATINIB [Suspect]
     Dates: start: 20080107
  2. XELODA [Concomitant]
     Dates: start: 20080107
  3. OMEPRAZOLE [Concomitant]
  4. CYANOCOBALAMINE [Concomitant]

REACTIONS (4)
  - DIARRHOEA [None]
  - HYPERTRIGLYCERIDAEMIA [None]
  - RASH [None]
  - TRANSAMINASES INCREASED [None]
